FAERS Safety Report 6002578-3 (Version None)
Quarter: 2008Q4

REPORT INFORMATION
  Report Type: 
  Country: None (occurrence: None)
  Receive Date: 20081215
  Receipt Date: 20080717
  Transmission Date: 20090506
  Serious: No
  Sender: FDA-Public Use
  Company Number: US-AMGEN-KDL252739

PATIENT
  Sex: Female

DRUGS (2)
  1. ENBREL [Suspect]
     Indication: RHEUMATOID ARTHRITIS
     Route: 058
     Dates: start: 20070719
  2. LEFLUNOMIDE [Concomitant]
     Dates: start: 20061101

REACTIONS (9)
  - ARTHRALGIA [None]
  - IMPAIRED HEALING [None]
  - INFLUENZA [None]
  - JOINT STIFFNESS [None]
  - NASOPHARYNGITIS [None]
  - PARAESTHESIA [None]
  - PERIPHERAL COLDNESS [None]
  - RHEUMATOID ARTHRITIS [None]
  - SINUS HEADACHE [None]
